FAERS Safety Report 8997718 (Version 1)
Quarter: 2013Q1

REPORT INFORMATION
  Report Type: Spontaneous
  Country: FR (occurrence: FR)
  Receive Date: 20130104
  Receipt Date: 20130104
  Transmission Date: 20140127
  Serious: Yes (Death, Life-Threatening, Hospitalization, Other)
  Sender: FDA-Public Use
  Company Number: FR-ROCHE-1175745

PATIENT
  Sex: Male

DRUGS (5)
  1. ACTILYSE [Suspect]
     Indication: CEREBROVASCULAR ACCIDENT
     Route: 042
     Dates: start: 20100407, end: 20100407
  2. KARDEGIC [Suspect]
     Indication: PRODUCT USED FOR UNKNOWN INDICATION
     Dosage: POWER FOR DRINKABLE SOLUTION
     Route: 048
     Dates: end: 20100407
  3. PLAVIX [Suspect]
     Indication: PRODUCT USED FOR UNKNOWN INDICATION
     Route: 048
     Dates: end: 20100407
  4. TAHOR [Concomitant]
     Route: 065
  5. TENORETIC [Concomitant]
     Route: 065

REACTIONS (3)
  - Cerebral haemorrhage [Fatal]
  - Inflammation [Unknown]
  - Hyperglycaemia [Unknown]
